FAERS Safety Report 7210506-8 (Version None)
Quarter: 2011Q1

REPORT INFORMATION
  Report Type: 
  Country: None (occurrence: None)
  Receive Date: 20110105
  Receipt Date: 20101227
  Transmission Date: 20110831
  Serious: Yes (Other)
  Sender: FDA-Public Use
  Company Number: CA-ELI_LILLY_AND_COMPANY-CA201012006635

PATIENT
  Age: 61 Year
  Sex: Female

DRUGS (5)
  1. ATARAX [Concomitant]
  2. INSULIN [Concomitant]
  3. PREDNISONE [Concomitant]
  4. FORTEO [Suspect]
     Indication: OSTEOPOROSIS
     Dosage: 20 UG, DAILY (1/D)
     Route: 058
     Dates: start: 20051101
  5. VITAMIN D [Concomitant]

REACTIONS (1)
  - BREAST CANCER [None]
